FAERS Safety Report 16282188 (Version 1)
Quarter: 2019Q2

REPORT INFORMATION
  Report Type: Spontaneous
  Country: US (occurrence: US)
  Receive Date: 20190507
  Receipt Date: 20190507
  Transmission Date: 20190711
  Serious: Yes (Other)
  Sender: FDA-Public Use
  Company Number: PHEH2019US018784

PATIENT
  Age: 31 Year
  Sex: Female

DRUGS (1)
  1. PROMACTA [Suspect]
     Active Substance: ELTROMBOPAG OLAMINE
     Indication: DIGEORGE^S SYNDROME
     Dosage: 25 MG, QD
     Route: 048
     Dates: start: 20190221

REACTIONS (3)
  - Heart rate abnormal [Unknown]
  - Product use in unapproved indication [Unknown]
  - Epistaxis [Unknown]

NARRATIVE: CASE EVENT DATE: 20190429
